FAERS Safety Report 8419464-1 (Version None)
Quarter: 2012Q2

REPORT INFORMATION
  Report Type: 
  Country: None (occurrence: None)
  Receive Date: 20120607
  Receipt Date: 20120529
  Transmission Date: 20120825
  Serious: Yes (Other)
  Sender: FDA-Public Use
  Company Number: US-ENDO PHARMACEUTICALS INC.-OPCR20121184

PATIENT
  Sex: Female
  Weight: 61.29 kg

DRUGS (4)
  1. OPANA ER [Concomitant]
     Indication: PAIN
     Dosage: UNKNOWN
     Route: 048
     Dates: end: 20120301
  2. OPANA ER [Suspect]
     Indication: SURGERY
  3. OPANA ER [Concomitant]
     Indication: SURGERY
  4. OPANA ER [Suspect]
     Indication: PAIN
     Route: 048
     Dates: start: 20120301

REACTIONS (3)
  - INAPPROPRIATE SCHEDULE OF DRUG ADMINISTRATION [None]
  - MEDICATION RESIDUE [None]
  - DRUG EFFECT DECREASED [None]
